FAERS Safety Report 7985821-0 (Version None)
Quarter: 2011Q4

REPORT INFORMATION
  Report Type: 
  Country: None (occurrence: None)
  Receive Date: 20111214
  Receipt Date: 20111130
  Transmission Date: 20120403
  Serious: Yes (Death, Life-Threatening, Hospitalization, Other)
  Sender: FDA-Public Use
  Company Number: 2011MA017038

PATIENT
  Sex: Female

DRUGS (44)
  1. ISOSORBIDE MONONITRATE [Concomitant]
  2. FLUCONAZOLE [Concomitant]
  3. PLAVIX [Concomitant]
  4. METOPROLOL SUCCINATE [Concomitant]
  5. COLACE [Concomitant]
  6. MORPHINE [Concomitant]
  7. CEFTRIAXONE [Concomitant]
  8. NITROGLYCERIN [Concomitant]
  9. PERIDEX [Concomitant]
  10. LASIX [Concomitant]
  11. ZOCOR [Concomitant]
  12. MACROBID [Concomitant]
  13. POTASSIUM CHLORIDE [Concomitant]
  14. ERTAPENEM [Concomitant]
  15. DIFLUCAN [Concomitant]
  16. ACE INHIBITOR [Concomitant]
  17. HYDRALAZINE HCL [Concomitant]
  18. OXYCODONE HCL [Concomitant]
  19. ACETAMINOPHEN [Concomitant]
  20. IMDUR [Concomitant]
  21. ZINC [Concomitant]
  22. DIGOXIN [Suspect]
     Indication: ATRIAL FIBRILLATION
     Dosage: 0.125 MG;QD;PO
     Route: 048
     Dates: start: 20070403, end: 20070710
  23. CIPROFLOXACIN [Concomitant]
  24. MUCINEX [Concomitant]
  25. MULTI-VITAMIN [Concomitant]
  26. PROTONIX [Concomitant]
  27. LOPRESSOR [Concomitant]
  28. PHENYTOIN [Concomitant]
  29. NEURONTIN [Concomitant]
  30. DILANTIN [Concomitant]
  31. VANCOMYCIN HYCHLORIDE [Concomitant]
  32. ESOMEPRAZOLE MAGNESIUM [Concomitant]
  33. SENNOSIDES-DOCUSATE [Concomitant]
  34. DUONEB [Concomitant]
  35. TIMENTIN [Concomitant]
  36. PREDNISONE TAB [Concomitant]
  37. LISINOPRIL [Concomitant]
  38. FLAGYL [Concomitant]
  39. BETA BLOCKER [Concomitant]
  40. SIMVASTATIN [Concomitant]
  41. FOLIC ACID [Concomitant]
  42. BACTRIM [Concomitant]
  43. FENTANYL [Concomitant]
  44. BISMUTH SUBSALICYLATE IN OIL INJ [Concomitant]

REACTIONS (84)
  - PERIPHERAL VASCULAR DISORDER [None]
  - ATRIAL FIBRILLATION [None]
  - GASTRIC ULCER HAEMORRHAGE [None]
  - HEART RATE IRREGULAR [None]
  - CHEST PAIN [None]
  - TRICUSPID VALVE INCOMPETENCE [None]
  - FEMUR FRACTURE [None]
  - PULMONARY OEDEMA [None]
  - DYSSTASIA [None]
  - GASTRIC HAEMORRHAGE [None]
  - RENAL FAILURE ACUTE [None]
  - PNEUMONIA [None]
  - DEMENTIA [None]
  - URINARY TRACT INFECTION [None]
  - FAILURE TO THRIVE [None]
  - CANDIDIASIS [None]
  - WHITE BLOOD CELL COUNT INCREASED [None]
  - PAIN [None]
  - DIARRHOEA [None]
  - CONVULSION [None]
  - FALL [None]
  - MUCOUS STOOLS [None]
  - SKIN ULCER [None]
  - PLEURAL EFFUSION [None]
  - GASTRIC ULCER [None]
  - PAIN IN EXTREMITY [None]
  - ABDOMINAL PAIN [None]
  - WHEELCHAIR USER [None]
  - ULCER [None]
  - GOUT [None]
  - AGITATION [None]
  - HAEMOLYTIC ANAEMIA [None]
  - PERIPHERAL ISCHAEMIA [None]
  - HYPOXIA [None]
  - DEHYDRATION [None]
  - ATELECTASIS [None]
  - CORONARY ARTERY DISEASE [None]
  - OEDEMA PERIPHERAL [None]
  - RALES [None]
  - HIP FRACTURE [None]
  - GASTRIC PERFORATION [None]
  - DUODENAL ULCER [None]
  - OSTEOARTHRITIS [None]
  - ABNORMAL FAECES [None]
  - CONFUSIONAL STATE [None]
  - HYPOPHAGIA [None]
  - BLOOD PRESSURE DECREASED [None]
  - GASTROINTESTINAL NECROSIS [None]
  - RENAL FAILURE [None]
  - METABOLIC ENCEPHALOPATHY [None]
  - ECONOMIC PROBLEM [None]
  - CARDIAC FAILURE CONGESTIVE [None]
  - DYSPNOEA [None]
  - ERYTHEMA [None]
  - HYPOPNOEA [None]
  - HYPERTENSION [None]
  - MALNUTRITION [None]
  - SEPSIS [None]
  - DYSARTHRIA [None]
  - HAEMATEMESIS [None]
  - ADVERSE EVENT [None]
  - DELIRIUM [None]
  - BEDRIDDEN [None]
  - MITRAL VALVE INCOMPETENCE [None]
  - TROPONIN INCREASED [None]
  - TOXICITY TO VARIOUS AGENTS [None]
  - ASTHENIA [None]
  - GENERAL PHYSICAL HEALTH DETERIORATION [None]
  - COGNITIVE DISORDER [None]
  - LEFT ATRIAL DILATATION [None]
  - DUODENAL ULCER PERFORATION [None]
  - HEPATIC ENZYME INCREASED [None]
  - UNEVALUABLE EVENT [None]
  - CYST [None]
  - HELICOBACTER INFECTION [None]
  - NAUSEA [None]
  - NEURODEGENERATIVE DISORDER [None]
  - POST PROCEDURAL COMPLICATION [None]
  - DIASTOLIC DYSFUNCTION [None]
  - STASIS DERMATITIS [None]
  - BREATH SOUNDS ABNORMAL [None]
  - ESCHERICHIA INFECTION [None]
  - BRAIN NATRIURETIC PEPTIDE INCREASED [None]
  - HYPOKALAEMIA [None]
